FAERS Safety Report 16355720 (Version 1)
Quarter: 2019Q2

REPORT INFORMATION
  Report Type: Report from Study
  Country: MX (occurrence: MX)
  Receive Date: 20190525
  Receipt Date: 20190525
  Transmission Date: 20190711
  Serious: Yes (Hospitalization)
  Sender: FDA-Public Use
  Company Number: MX-UCBSA-2019021379

PATIENT
  Sex: Female

DRUGS (1)
  1. ROTIGOTINE [Suspect]
     Active Substance: ROTIGOTINE
     Indication: PRODUCT USED FOR UNKNOWN INDICATION
     Dosage: STRENGTH: 4 MG

REACTIONS (1)
  - Depression [Not Recovered/Not Resolved]

NARRATIVE: CASE EVENT DATE: 2017
